FAERS Safety Report 5031812-1 (Version None)
Quarter: 2006Q2

REPORT INFORMATION
  Report Type: 
  Country: None (occurrence: None)
  Receive Date: 20060621
  Receipt Date: 20060417
  Transmission Date: 20061013
  Serious: No
  Sender: FDA-Public Use
  Company Number: US-AMGEN-US176515

PATIENT
  Sex: Male

DRUGS (2)
  1. EPOGEN [Suspect]
     Indication: DIALYSIS
     Dates: start: 20050411
  2. ARANESP [Suspect]
     Indication: DIALYSIS
     Dates: end: 20050411

REACTIONS (2)
  - CONTUSION [None]
  - INJECTION SITE PAIN [None]
